FAERS Safety Report 11091034 (Version 1)
Quarter: 2015Q2

REPORT INFORMATION
  Report Type: Spontaneous
  Country: US (occurrence: None)
  Receive Date: 20150504
  Receipt Date: 20150504
  Transmission Date: 20150821
  Serious: Yes (Other)
  Sender: FDA-Public Use
  Company Number: None

PATIENT
  Age: 32 Year
  Sex: Female
  Weight: 84.82 kg

DRUGS (2)
  1. VENLAFAXINE HCL [Suspect]
     Active Substance: VENLAFAXINE HYDROCHLORIDE
     Indication: DEPRESSION
     Dosage: WAS 4, NOW 1 PILL
     Route: 048
     Dates: start: 20150301, end: 20150501
  2. VENLAFAXINE HCL [Suspect]
     Active Substance: VENLAFAXINE HYDROCHLORIDE
     Indication: POST-TRAUMATIC STRESS DISORDER
     Dosage: WAS 4, NOW 1 PILL
     Route: 048
     Dates: start: 20150301, end: 20150501

REACTIONS (14)
  - Diarrhoea [None]
  - Dizziness [None]
  - Malaise [None]
  - Vomiting [None]
  - Tremor [None]
  - Depression [None]
  - Drug withdrawal syndrome [None]
  - Abdominal pain upper [None]
  - Mood altered [None]
  - Migraine [None]
  - Fatigue [None]
  - Night sweats [None]
  - Insomnia [None]
  - Nausea [None]

NARRATIVE: CASE EVENT DATE: 20150501
